FAERS Safety Report 6722097-6 (Version None)
Quarter: 2010Q2

REPORT INFORMATION
  Report Type: 
  Country: None (occurrence: None)
  Receive Date: 20100505
  Receipt Date: 20100225
  Transmission Date: 20101027
  Serious: No
  Sender: FDA-Public Use
  Company Number: WAES 1002USA04055

PATIENT
  Age: 55 Year
  Sex: Female

DRUGS (2)
  1. ISENTRESS [Suspect]
     Indication: HIV INFECTION
     Dosage: 400 MG/BID/PO
     Route: 048
  2. COMBIVIR [Concomitant]

REACTIONS (2)
  - ANXIETY [None]
  - NERVOUSNESS [None]
